FAERS Safety Report 15171618 (Version 4)
Quarter: 2018Q3

REPORT INFORMATION
  Report Type: Spontaneous
  Country: US (occurrence: US)
  Receive Date: 20180720
  Receipt Date: 20180922
  Transmission Date: 20181010
  Serious: Yes (Other)
  Sender: FDA-Public Use
  Company Number: US-JNJFOC-20180709355

PATIENT
  Age: 75 Year
  Sex: Male
  Weight: 71.58 kg

DRUGS (4)
  1. VITAMIN D3 [Concomitant]
     Active Substance: CHOLECALCIFEROL
     Route: 065
  2. PREDNISONE. [Concomitant]
     Active Substance: PREDNISONE
     Indication: PROSTATE CANCER
     Route: 065
  3. SIMVASTATIN. [Concomitant]
     Active Substance: SIMVASTATIN
     Route: 065
  4. ZYTIGA [Suspect]
     Active Substance: ABIRATERONE ACETATE
     Indication: PROSTATE CANCER
     Route: 048
     Dates: start: 20171023, end: 20180604

REACTIONS (5)
  - Drug ineffective [Unknown]
  - Skin atrophy [Recovered/Resolved]
  - Prostate cancer [Unknown]
  - Skin discolouration [Recovered/Resolved]
  - Skin haemorrhage [Recovered/Resolved]

NARRATIVE: CASE EVENT DATE: 201804
